FAERS Safety Report 4318337-3 (Version None)
Quarter: 2004Q1

REPORT INFORMATION
  Report Type: 
  Country: None (occurrence: None)
  Receive Date: 20040315
  Receipt Date: 20031209
  Transmission Date: 20041129
  Serious: No
  Sender: FDA-Public Use
  Company Number: 2003190013US

PATIENT
  Age: 76 Year
  Sex: Female

DRUGS (4)
  1. BEXTRA [Suspect]
     Indication: ARTHRITIS
     Dosage: 10 MG,
     Dates: start: 20031009
  2. HYDROXYZINE [Concomitant]
  3. ALDOMET (METHLDOPA) [Concomitant]
  4. LABETALOL HCL [Concomitant]

REACTIONS (1)
  - MUSCLE SPASMS [None]
